FAERS Safety Report 14162409 (Version 4)
Quarter: 2017Q4

REPORT INFORMATION
  Report Type: Report from Study
  Country: JP (occurrence: JP)
  Receive Date: 20171106
  Receipt Date: 20171214
  Transmission Date: 20180321
  Serious: Yes (Death, Hospitalization, Other)
  Sender: FDA-Public Use
  Company Number: PHJP2017JP031376

PATIENT
  Age: 39 Year
  Sex: Male

DRUGS (4)
  1. KEPPRA [Concomitant]
     Active Substance: LEVETIRACETAM
     Indication: EPILEPSY
     Dosage: UNK
     Route: 048
     Dates: start: 20170929, end: 20170930
  2. TAFINLAR [Suspect]
     Active Substance: DABRAFENIB MESYLATE
     Indication: MALIGNANT MELANOMA STAGE IV
     Dosage: 200 MG, QD
     Route: 048
     Dates: start: 20170811
  3. MEKINIST [Suspect]
     Active Substance: TRAMETINIB DIMETHYL SULFOXIDE
     Indication: MALIGNANT MELANOMA STAGE IV
     Dosage: 1.5 MG, QD
     Route: 048
     Dates: start: 20170811, end: 20170919
  4. MEKINIST [Suspect]
     Active Substance: TRAMETINIB DIMETHYL SULFOXIDE
     Dosage: 1 MG, QD
     Route: 048
     Dates: start: 20170927

REACTIONS (9)
  - Ejection fraction decreased [Not Recovered/Not Resolved]
  - Renal impairment [Fatal]
  - Cardiac failure [Recovered/Resolved]
  - Oliguria [Fatal]
  - Epilepsy [Unknown]
  - Pyrexia [Unknown]
  - Tumour invasion [Fatal]
  - Loss of consciousness [Recovered/Resolved]
  - Ascites [Not Recovered/Not Resolved]

NARRATIVE: CASE EVENT DATE: 20170906
